FAERS Safety Report 10552458 (Version 1)
Quarter: 2014Q4

REPORT INFORMATION
  Report Type: Spontaneous
  Country: US (occurrence: US)
  Receive Date: 20141029
  Receipt Date: 20141029
  Transmission Date: 20150529
  Serious: No
  Sender: FDA-Public Use
  Company Number: US-BAYER-2014-159500

PATIENT
  Age: 77 Year
  Sex: Female
  Weight: 108.84 kg

DRUGS (3)
  1. ALEVE [Suspect]
     Active Substance: NAPROXEN SODIUM
     Indication: ARTHRALGIA
     Dosage: 1 DF, QD WITH FOOD
     Route: 048
     Dates: start: 2000
  2. ALEVE [Suspect]
     Active Substance: NAPROXEN SODIUM
     Indication: MUSCULOSKELETAL PAIN
  3. GLUCOSAMINE [Concomitant]
     Active Substance: GLUCOSAMINE
     Dosage: UNK

REACTIONS (1)
  - Incorrect drug administration duration [None]

NARRATIVE: CASE EVENT DATE: 2000
